FAERS Safety Report 8137026-0 (Version None)
Quarter: 2012Q1

REPORT INFORMATION
  Report Type: 
  Country: None (occurrence: None)
  Receive Date: 20120215
  Receipt Date: 20120206
  Transmission Date: 20120608
  Serious: Yes (Death)
  Sender: FDA-Public Use
  Company Number: US-BIOGENIDEC-2007BI009092

PATIENT
  Age: 42 Year
  Sex: Female
  Weight: 43 kg

DRUGS (2)
  1. AVONEX [Suspect]
     Route: 030
     Dates: start: 20070411
  2. AVONEX [Suspect]
     Indication: MULTIPLE SCLEROSIS
     Route: 030
     Dates: end: 20020805

REACTIONS (3)
  - DEATH [None]
  - EAR INFECTION [None]
  - SINUSITIS [None]
